FAERS Safety Report 8796586 (Version 1)
Quarter: 2012Q4

REPORT INFORMATION
  Report Type: 
  Country: ZA (occurrence: ZA)
  Receive Date: 20120919
  Receipt Date: 20120919
  Transmission Date: 20130627
  Serious: Yes (Hospitalization, Other)
  Sender: FDA-Public Use
  Company Number: ZA-ELI_LILLY_AND_COMPANY-ZA201209002269

PATIENT
  Age: 60 Year
  Sex: Male

DRUGS (2)
  1. HUMULIN 30% REGULAR, 70% NPH [Suspect]
     Indication: TYPE 2 DIABETES MELLITUS
     Dosage: 30 u, each morning
     Route: 058
     Dates: start: 20120202
  2. HUMULIN 30% REGULAR, 70% NPH [Suspect]
     Dosage: 20 u, each evening
     Route: 058
     Dates: start: 20120202

REACTIONS (1)
  - Cerebrovascular accident [Unknown]
